FAERS Safety Report 7466073-7 (Version None)
Quarter: 2011Q2

REPORT INFORMATION
  Report Type: 
  Country: None (occurrence: None)
  Receive Date: 20110509
  Receipt Date: 20100614
  Transmission Date: 20111010
  Serious: No
  Sender: FDA-Public Use
  Company Number: US-ALEXION-A201000687

PATIENT
  Sex: Female

DRUGS (9)
  1. ZOFRAN [Concomitant]
     Indication: NAUSEA
  2. METOPROLOL TARTRATE [Concomitant]
     Indication: HYPERTENSION
  3. SOLIRIS [Suspect]
     Indication: PAROXYSMAL NOCTURNAL HAEMOGLOBINURIA
     Dosage: 600 MG,
     Route: 042
     Dates: start: 20091202, end: 20091201
  4. ZOFRAN [Concomitant]
     Indication: VOMITING
  5. CALCIUM [Concomitant]
  6. SOLIRIS [Suspect]
     Dosage: 900 MG, Q2W
     Route: 042
     Dates: start: 20091230
  7. BENADRYL [Concomitant]
  8. PRILOSEC [Concomitant]
     Indication: GASTROOESOPHAGEAL REFLUX DISEASE
  9. HYDROCODONE BITARTRATE [Concomitant]
     Indication: PAIN
     Dosage: UNK

REACTIONS (3)
  - ARTHRALGIA [None]
  - JOINT INJURY [None]
  - JOINT INSTABILITY [None]
